FAERS Safety Report 5647456-4 (Version None)
Quarter: 2008Q1

REPORT INFORMATION
  Report Type: 
  Country: None (occurrence: None)
  Receive Date: 20080228
  Receipt Date: 20080223
  Transmission Date: 20080703
  Serious: Yes (Other)
  Sender: FDA-Public Use
  Company Number: CHPA2008US03402

PATIENT
  Age: 48 Year
  Sex: Female

DRUGS (6)
  1. BENEFIBER W/WHEAT DEXTRIN (NCH) (WHEAT DEXTRIN) POWDER [Suspect]
     Dosage: 2 TSP, BID, ORAL
     Route: 048
     Dates: start: 20080115
  2. NORVASC [Concomitant]
  3. INSULIN (INSULIN) [Concomitant]
  4. LIDOERM (LIDOCAINE) [Concomitant]
  5. TAGAMET [Concomitant]
  6. DILAUDID [Concomitant]

REACTIONS (9)
  - ERYTHEMA [None]
  - HYPERHIDROSIS [None]
  - HYPERTENSION [None]
  - MIGRAINE [None]
  - MUSCLE SPASMS [None]
  - RASH [None]
  - RENAL PAIN [None]
  - SKIN BURNING SENSATION [None]
  - SKIN EXFOLIATION [None]
